FAERS Safety Report 8304376-4 (Version None)
Quarter: 2012Q2

REPORT INFORMATION
  Report Type: 
  Country: None (occurrence: None)
  Receive Date: 20120423
  Receipt Date: 20120410
  Transmission Date: 20120825
  Serious: Yes (Hospitalization)
  Sender: FDA-Public Use
  Company Number: US-ELI_LILLY_AND_COMPANY-US201204004204

PATIENT
  Age: 48 Year
  Sex: Male

DRUGS (2)
  1. ZYPREXA RELPREVV [Suspect]
     Dosage: 405 MG, MONTHLY (1/M)
     Route: 030
  2. PROLIXIN [Concomitant]
     Dosage: 25 MG, UNKNOWN
     Dates: start: 20120301

REACTIONS (1)
  - PNEUMONIA [None]
